FAERS Safety Report 10040715 (Version 2)
Quarter: 2014Q3

REPORT INFORMATION
  Report Type: Spontaneous
  Country: IT (occurrence: IT)
  Receive Date: 20140327
  Receipt Date: 20140721
  Transmission Date: 20150326
  Serious: Yes (Other)
  Sender: FDA-Public Use
  Company Number: IT-RANBAXY-2014RR-79202

PATIENT
  Age: 51 Year
  Sex: Male

DRUGS (2)
  1. ZYRTEC [Suspect]
     Active Substance: CETIRIZINE HYDROCHLORIDE
     Indication: ARTHROPOD BITE
     Dosage: 1 DF COMPLETE
     Route: 048
     Dates: start: 20130727, end: 20130727
  2. AMOXICILLIN. [Suspect]
     Active Substance: AMOXICILLIN
     Indication: ARTHROPOD BITE
     Dosage: 1 DF COMPLETE
     Route: 048
     Dates: start: 20130727, end: 20130727

REACTIONS (3)
  - Local swelling [Recovering/Resolving]
  - Urticaria [Recovering/Resolving]
  - Eyelid oedema [Recovering/Resolving]

NARRATIVE: CASE EVENT DATE: 20130728
